FAERS Safety Report 6022805-6 (Version None)
Quarter: 2008Q4

REPORT INFORMATION
  Report Type: 
  Country: None (occurrence: None)
  Receive Date: 20081230
  Receipt Date: 20081218
  Transmission Date: 20090506
  Serious: Yes (Other)
  Sender: FDA-Public Use
  Company Number: US-ELI_LILLY_AND_COMPANY-US200812004950

PATIENT
  Sex: Female

DRUGS (1)
  1. ZYPREXA [Suspect]
     Indication: AGGRESSION
     Dosage: 2.5 MG, 2/D
     Dates: start: 20081209

REACTIONS (2)
  - FAILURE TO THRIVE [None]
  - PANCYTOPENIA [None]
